FAERS Safety Report 18140285 (Version 1)
Quarter: 2020Q3

REPORT INFORMATION
  Report Type: Spontaneous
  Country: US (occurrence: US)
  Receive Date: 20200812
  Receipt Date: 20200812
  Transmission Date: 20201103
  Serious: No
  Sender: FDA-Public Use
  Company Number: None

PATIENT
  Age: 54 Year
  Sex: Female

DRUGS (2)
  1. ARIPIPRAZOLE (ARIPIPRAZOLE 20MG TAB) [Suspect]
     Active Substance: ARIPIPRAZOLE
     Indication: BIPOLAR DISORDER
     Route: 048
     Dates: start: 20190313, end: 20190408
  2. ARIPIPRAZOLE (ARIPIPRAZOLE 20MG TAB) [Suspect]
     Active Substance: ARIPIPRAZOLE
     Indication: MANIA
     Route: 048
     Dates: start: 20190313, end: 20190408

REACTIONS (2)
  - Suicidal ideation [None]
  - Depression [None]

NARRATIVE: CASE EVENT DATE: 20190330
